FAERS Safety Report 7406774-X (Version None)
Quarter: 2011Q2

REPORT INFORMATION
  Report Type: 
  Country: None (occurrence: None)
  Receive Date: 20110411
  Receipt Date: 20110328
  Transmission Date: 20111010
  Serious: Yes (Disabling)
  Sender: FDA-Public Use
  Company Number: PHHY2011GB24993

PATIENT
  Age: 72 Year
  Sex: Male
  Weight: 104.3 kg

DRUGS (1)
  1. PRAVASTATIN [Suspect]

REACTIONS (1)
  - AMNESIA [None]
